FAERS Safety Report 14039225 (Version 3)
Quarter: 2017Q4

REPORT INFORMATION
  Report Type: Spontaneous
  Country: JP (occurrence: JP)
  Receive Date: 20171004
  Receipt Date: 20171121
  Transmission Date: 20180321
  Serious: Yes (Life-Threatening, Hospitalization)
  Sender: FDA-Public Use
  Company Number: JP-TEVA-812142ISR

PATIENT
  Age: 75 Year
  Sex: Female

DRUGS (2)
  1. MODIODAL TABLETS 100MG [Suspect]
     Active Substance: MODAFINIL
     Indication: NARCOLEPSY
     Dosage: 200 MILLIGRAM DAILY;
     Route: 048
     Dates: start: 201506, end: 20170916
  2. MODIODAL TABLETS 100MG [Suspect]
     Active Substance: MODAFINIL
     Dosage: 200 MILLIGRAM DAILY;
     Route: 048
     Dates: start: 20170922

REACTIONS (1)
  - Loss of consciousness [Recovered/Resolved]

NARRATIVE: CASE EVENT DATE: 20170921
